FAERS Safety Report 6434357-7 (Version None)
Quarter: 2009Q4

REPORT INFORMATION
  Report Type: 
  Country: None (occurrence: None)
  Receive Date: 20091110
  Receipt Date: 20080926
  Transmission Date: 20100525
  Serious: No
  Sender: FDA-Public Use
  Company Number: US-ASTRAZENECA-2009UW15130

PATIENT
  Age: 58 Year
  Sex: Female

DRUGS (2)
  1. PRILOSEC OTC [Suspect]
     Indication: DYSPEPSIA
     Dosage: 1 TABLET, 1 /DAY FOR 3 DAYS
     Route: 048
     Dates: start: 20080923, end: 20080925
  2. TUMS [Concomitant]
     Dosage: UNKNOWN

REACTIONS (6)
  - BACK PAIN [None]
  - CONSTIPATION [None]
  - DRY MOUTH [None]
  - HEADACHE [None]
  - PAIN IN EXTREMITY [None]
  - THIRST [None]
